FAERS Safety Report 4330341-8 (Version None)
Quarter: 2004Q1

REPORT INFORMATION
  Report Type: 
  Country: None (occurrence: None)
  Receive Date: 20040329
  Receipt Date: 20040316
  Transmission Date: 20041129
  Serious: Yes (Hospitalization)
  Sender: FDA-Public Use
  Company Number: 200410158BFR

PATIENT
  Age: 73 Year
  Sex: Female

DRUGS (11)
  1. GLUCOR (ACARBOSE) [Suspect]
     Indication: DIABETES MELLITUS
     Dosage: 75 MG, TOTAL DAILY, ORAL
     Route: 048
     Dates: end: 20031203
  2. FUROSEMIDE [Suspect]
     Indication: ESSENTIAL HYPERTENSION
     Dosage: ONCE, ORAL
     Route: 048
     Dates: end: 20031203
  3. NEURONTIN [Suspect]
     Dosage: BID, ORAL
     Route: 048
     Dates: end: 20031205
  4. APROVEL (IRBESARTAN) [Suspect]
     Indication: ESSENTIAL HYPERTENSION
     Dosage: ONCE, ORAL
     Route: 048
     Dates: end: 20031201
  5. TRAMADOL HCL [Suspect]
     Dosage: BID, ORAL
     Route: 048
     Dates: end: 20031201
  6. EFFEXOR [Suspect]
     Indication: DYSTHYMIC DISORDER
     Dosage: 75 MG, TOTAL DAILY, ORAL
     Route: 048
     Dates: end: 20031201
  7. OGAST [Concomitant]
  8. DIFRAREL [Concomitant]
  9. DAFALGAN [Concomitant]
  10. AMLODIPINE [Concomitant]
  11. VASTAREL [Concomitant]

REACTIONS (5)
  - ECZEMA [None]
  - FALL [None]
  - PRURITUS [None]
  - TOXIC SKIN ERUPTION [None]
  - URTICARIA [None]
